FAERS Safety Report 25552646 (Version 1)
Quarter: 2025Q3

REPORT INFORMATION
  Report Type: Spontaneous
  Country: US (occurrence: US)
  Receive Date: 20250715
  Receipt Date: 20250715
  Transmission Date: 20251020
  Serious: No
  Sender: RECKITT BENCKISER
  Company Number: US-PROD-AS2-212756134-20-24-USA-RB-0012882

PATIENT
  Age: 94 Year
  Sex: Female

DRUGS (2)
  1. MUCINEX D [Suspect]
     Active Substance: GUAIFENESIN\PSEUDOEPHEDRINE HYDROCHLORIDE
     Indication: Cough
     Dosage: 2 TABLETS A DAY, BID
     Route: 048
     Dates: end: 20241024
  2. MUCINEX D [Suspect]
     Active Substance: GUAIFENESIN\PSEUDOEPHEDRINE HYDROCHLORIDE
     Indication: Secretion discharge

REACTIONS (1)
  - Product use issue [Unknown]
